FAERS Safety Report 12464196 (Version 1)
Quarter: 2016Q2

REPORT INFORMATION
  Report Type: Spontaneous
  Country: US (occurrence: US)
  Receive Date: 20160614
  Receipt Date: 20160614
  Transmission Date: 20160815
  Serious: Yes (Other)
  Sender: FDA-Public Use
  Company Number: US-GLAXOSMITHKLINE-US2016083224

PATIENT
  Sex: Male

DRUGS (10)
  1. JALYN [Suspect]
     Active Substance: DUTASTERIDE\TAMSULOSIN HYDROCHLORIDE
     Indication: PROSTATOMEGALY
     Dosage: 1 DF, 1D
     Route: 048
  2. JALYN [Suspect]
     Active Substance: DUTASTERIDE\TAMSULOSIN HYDROCHLORIDE
     Indication: BENIGN PROSTATIC HYPERPLASIA
  3. FOLBIC [Concomitant]
     Active Substance: CYANOCOBALAMIN\FOLIC ACID\PYRIDOXINE
  4. PANTOPRAZOLE [Concomitant]
     Active Substance: PANTOPRAZOLE SODIUM
  5. VYTORIN (EZETIMIBE + SIMVASTATIN) [Concomitant]
  6. IMDUR [Concomitant]
     Active Substance: ISOSORBIDE MONONITRATE
  7. METOPROLOL + HYDROCHLOROTHIAZIDE [Concomitant]
  8. MULTAQ [Concomitant]
     Active Substance: DRONEDARONE
  9. ASPIRIN. [Concomitant]
     Active Substance: ASPIRIN
  10. LAMICTAL [Concomitant]
     Active Substance: LAMOTRIGINE

REACTIONS (6)
  - Bladder cancer [Not Recovered/Not Resolved]
  - Bladder neoplasm [Not Recovered/Not Resolved]
  - Benign prostatic hyperplasia [Not Recovered/Not Resolved]
  - Prostatic specific antigen decreased [Not Recovered/Not Resolved]
  - Prostate cancer [Not Recovered/Not Resolved]
  - Bladder neoplasm surgery [Unknown]

NARRATIVE: CASE EVENT DATE: 2015
